FAERS Safety Report 7611898-8 (Version None)
Quarter: 2011Q3

REPORT INFORMATION
  Report Type: 
  Country: None (occurrence: None)
  Receive Date: 20110715
  Receipt Date: 20110712
  Transmission Date: 20111222
  Serious: Yes (Death)
  Sender: FDA-Public Use
  Company Number: US-US-EMD SERONO, INC.-7000017

PATIENT
  Sex: Male

DRUGS (2)
  1. SAIZEN [Suspect]
     Indication: BODY HEIGHT BELOW NORMAL
     Dates: start: 20090101, end: 20090101
  2. SAIZEN [Suspect]
     Dates: start: 20090901, end: 20100101

REACTIONS (1)
  - GLIOMA [None]
